FAERS Safety Report 16334249 (Version 3)
Quarter: 2020Q1

REPORT INFORMATION
  Report Type: Spontaneous
  Country: US (occurrence: US)
  Receive Date: 20190520
  Receipt Date: 20200103
  Transmission Date: 20200409
  Serious: No
  Sender: FDA-Public Use
  Company Number: US-ARRAY-2019-05394

PATIENT

DRUGS (6)
  1. BRAFTOVI [Suspect]
     Active Substance: ENCORAFENIB
     Indication: SOFT TISSUE NEOPLASM
  2. BRAFTOVI [Suspect]
     Active Substance: ENCORAFENIB
     Indication: BONE NEOPLASM
  3. MEKTOVI [Suspect]
     Active Substance: BINIMETINIB
     Indication: BONE NEOPLASM
  4. MEKTOVI [Suspect]
     Active Substance: BINIMETINIB
     Indication: MALIGNANT MELANOMA
     Dosage: 45 MG, BID
     Route: 048
     Dates: start: 20190316
  5. MEKTOVI [Suspect]
     Active Substance: BINIMETINIB
     Indication: SOFT TISSUE NEOPLASM
  6. BRAFTOVI [Suspect]
     Active Substance: ENCORAFENIB
     Indication: MALIGNANT MELANOMA
     Dosage: 450 MG, QD
     Route: 048
     Dates: start: 20190316

REACTIONS (2)
  - Central venous catheterisation [Unknown]
  - Nausea [Recovered/Resolved]

NARRATIVE: CASE EVENT DATE: 201903
